FAERS Safety Report 24912591 (Version 1)
Quarter: 2025Q1

REPORT INFORMATION
  Report Type: Spontaneous
  Country: CA (occurrence: CA)
  Receive Date: 20250131
  Receipt Date: 20250131
  Transmission Date: 20250409
  Serious: Yes (Hospitalization)
  Sender: BEIGENE
  Company Number: CA-BEIGENE-BGN-2025-001213

PATIENT
  Age: 72 Year
  Weight: 93 kg

DRUGS (23)
  1. BRUKINSA [Suspect]
     Active Substance: ZANUBRUTINIB
     Indication: Chronic lymphocytic leukaemia
     Dosage: 320 MILLIGRAM, QD
  2. BRUKINSA [Suspect]
     Active Substance: ZANUBRUTINIB
     Dosage: 320 MILLIGRAM, QD
     Route: 048
  3. BRUKINSA [Suspect]
     Active Substance: ZANUBRUTINIB
     Dosage: 320 MILLIGRAM, QD
     Route: 048
  4. BRUKINSA [Suspect]
     Active Substance: ZANUBRUTINIB
     Dosage: 320 MILLIGRAM, QD
  5. ALLOPURINOL [Concomitant]
     Active Substance: ALLOPURINOL
  6. ALLOPURINOL [Concomitant]
     Active Substance: ALLOPURINOL
  7. CALCIUM\VITAMIN D [Concomitant]
     Active Substance: CALCIUM\VITAMIN D
  8. CLOBETASOL [Concomitant]
     Active Substance: CLOBETASOL
  9. CLOBETASOL [Concomitant]
     Active Substance: CLOBETASOL
  10. BUDESONIDE\FORMOTEROL [Concomitant]
     Active Substance: BUDESONIDE\FORMOTEROL
  11. LOSARTAN [Concomitant]
     Active Substance: LOSARTAN
  12. LOSARTAN [Concomitant]
     Active Substance: LOSARTAN
  13. MOMETASONE FUROATE [Concomitant]
     Active Substance: MOMETASONE FUROATE
  14. PROCHLORPERAZINE [Concomitant]
     Active Substance: PROCHLORPERAZINE
  15. PANTOPRAZOLE [Concomitant]
     Active Substance: PANTOPRAZOLE
  16. PANTOPRAZOLE [Concomitant]
     Active Substance: PANTOPRAZOLE
  17. PREGABALIN [Concomitant]
     Active Substance: PREGABALIN
  18. PREGABALIN [Concomitant]
     Active Substance: PREGABALIN
  19. POLYETHYLENE GLYCOL [Concomitant]
     Active Substance: POLYETHYLENE GLYCOL
  20. RISEDRONATE SODIUM [Concomitant]
     Active Substance: RISEDRONATE SODIUM
  21. TEMAZEPAM [Concomitant]
     Active Substance: TEMAZEPAM
  22. TEMAZEPAM [Concomitant]
     Active Substance: TEMAZEPAM
  23. TRAMADOL HYDROCHLORIDE [Concomitant]
     Active Substance: TRAMADOL HYDROCHLORIDE

REACTIONS (2)
  - Febrile neutropenia [Recovering/Resolving]
  - Respiratory syncytial virus test positive [Recovering/Resolving]
